FAERS Safety Report 8036705-3 (Version None)
Quarter: 2012Q1

REPORT INFORMATION
  Report Type: 
  Country: None (occurrence: None)
  Receive Date: 20120111
  Receipt Date: 20120105
  Transmission Date: 20120608
  Serious: Yes (Other)
  Sender: FDA-Public Use
  Company Number: CA-ROCHE-1028587

PATIENT
  Sex: Female
  Weight: 64.014 kg

DRUGS (6)
  1. TEMOZOLOMIDE [Concomitant]
  2. STEMETIL [Concomitant]
  3. LORAZEPAM [Concomitant]
  4. AVASTIN [Suspect]
     Indication: ACUTE MYELOID LEUKAEMIA
     Dosage: INTERRUPTED
     Route: 042
     Dates: start: 20111122, end: 20111122
  5. AVASTIN [Suspect]
     Indication: GLIOBLASTOMA
  6. DECADRON [Concomitant]

REACTIONS (2)
  - ILL-DEFINED DISORDER [None]
  - NEOPLASM MALIGNANT [None]
